FAERS Safety Report 9140540 (Version 4)
Quarter: 2017Q1

REPORT INFORMATION
  Report Type: Report from Study
  Country: US (occurrence: US)
  Receive Date: 20130305
  Receipt Date: 20170320
  Transmission Date: 20170429
  Serious: Yes (Other)
  Sender: FDA-Public Use
  Company Number: US-ROCHE-1192789

PATIENT

DRUGS (1)
  1. RITUXIMAB [Suspect]
     Active Substance: RITUXIMAB
     Indication: MYOPATHY
     Route: 042

REACTIONS (9)
  - Cellulitis [Unknown]
  - Hypersensitivity [Unknown]
  - Leukopenia [Unknown]
  - Viral infection [Unknown]
  - Pneumonia [Unknown]
  - Infusion related reaction [Unknown]
  - Bronchospasm [Unknown]
  - Hypogammaglobulinaemia [Unknown]
  - Herpes virus infection [Unknown]
